FAERS Safety Report 17275170 (Version 5)
Quarter: 2020Q2

REPORT INFORMATION
  Report Type: Report from Study
  Country: None (occurrence: US)
  Receive Date: 20200116
  Receipt Date: 20200602
  Transmission Date: 20200713
  Serious: Yes (Other)
  Sender: FDA-Public Use
  Company Number: US-ABBVIE-20K-163-3232528-00

PATIENT
  Sex: Male

DRUGS (3)
  1. HUMIRA [Suspect]
     Active Substance: ADALIMUMAB
     Dosage: CITRATE FREE
     Route: 058
     Dates: start: 20200303, end: 202003
  2. METHOTREXATE. [Concomitant]
     Active Substance: METHOTREXATE
     Indication: PRODUCT USED FOR UNKNOWN INDICATION
  3. HUMIRA [Suspect]
     Active Substance: ADALIMUMAB
     Indication: PSORIATIC ARTHROPATHY
     Dosage: CITRATE FREE
     Route: 058
     Dates: end: 201912

REACTIONS (10)
  - Urticaria [Unknown]
  - Psoriatic arthropathy [Unknown]
  - Peripheral swelling [Unknown]
  - Skin discolouration [Unknown]
  - Post procedural complication [Unknown]
  - Psoriasis [Unknown]
  - Hernia [Unknown]
  - Discomfort [Unknown]
  - Myalgia [Unknown]
  - Rubber sensitivity [Recovered/Resolved]

NARRATIVE: CASE EVENT DATE: 2020
